FAERS Safety Report 23742242 (Version 3)
Quarter: 2024Q2

REPORT INFORMATION
  Report Type: Report from Study
  Country: ES (occurrence: ES)
  Receive Date: 20240415
  Receipt Date: 20240530
  Transmission Date: 20240716
  Serious: Yes (Death, Hospitalization)
  Sender: FDA-Public Use
  Company Number: ES-ABBVIE-5714765

PATIENT
  Age: 78 Year
  Sex: Male
  Weight: 103 kg

DRUGS (2)
  1. CARBIDOPA\LEVODOPA [Suspect]
     Active Substance: CARBIDOPA\LEVODOPA
     Indication: Parkinson^s disease
     Route: 050
     Dates: start: 20170504
  2. CARBIDOPA\LEVODOPA [Suspect]
     Active Substance: CARBIDOPA\LEVODOPA

REACTIONS (4)
  - Sepsis [Fatal]
  - Urinary tract infection [Recovering/Resolving]
  - Decubitus ulcer [Recovering/Resolving]
  - Infected skin ulcer [Unknown]

NARRATIVE: CASE EVENT DATE: 20240401
